FAERS Safety Report 9579955 (Version 3)
Quarter: 2014Q3

REPORT INFORMATION
  Report Type: Report from Study
  Country: US (occurrence: US)
  Receive Date: 20131002
  Receipt Date: 20140708
  Transmission Date: 20150326
  Serious: Yes (Hospitalization, Other)
  Sender: FDA-Public Use
  Company Number: US-ALEXION-A201302445

PATIENT

DRUGS (1)
  1. SOLIRIS [Suspect]
     Active Substance: ECULIZUMAB
     Indication: HAEMOLYTIC URAEMIC SYNDROME
     Dosage: 1200 MG, UNK
     Route: 042

REACTIONS (12)
  - Thrombocytopenia [Unknown]
  - Haematocrit decreased [Unknown]
  - Haemolytic uraemic syndrome [Recovered/Resolved]
  - Condition aggravated [Recovered/Resolved]
  - Haemoglobin decreased [Unknown]
  - Palpitations [Unknown]
  - Fatigue [Unknown]
  - Pyrexia [Unknown]
  - Blood creatinine increased [Unknown]
  - Diarrhoea haemorrhagic [Unknown]
  - Abdominal pain [Unknown]
  - Nausea [Not Recovered/Not Resolved]

NARRATIVE: CASE EVENT DATE: 201304
